FAERS Safety Report 14398135 (Version 3)
Quarter: 2018Q3

REPORT INFORMATION
  Report Type: Spontaneous
  Country: US (occurrence: US)
  Receive Date: 20180116
  Receipt Date: 20180806
  Transmission Date: 20181010
  Serious: No
  Sender: FDA-Public Use
  Company Number: US-009507513-1801USA004028

PATIENT
  Sex: Female

DRUGS (1)
  1. DULERA [Suspect]
     Active Substance: FORMOTEROL FUMARATE DIHYDRATE\MOMETASONE FUROATE
     Indication: ASTHMA
     Dosage: TWO INHALATIONS, TWICE A DAY

REACTIONS (4)
  - No adverse event [Unknown]
  - Product quality issue [Unknown]
  - Exposure during pregnancy [Unknown]
  - Drug dose omission [Unknown]
